FAERS Safety Report 16571731 (Version 2)
Quarter: 2019Q4

REPORT INFORMATION
  Report Type: Spontaneous
  Country: US (occurrence: US)
  Receive Date: 20190715
  Receipt Date: 20191007
  Transmission Date: 20200122
  Serious: No
  Sender: FDA-Public Use
  Company Number: US-PFIZER INC-2019297354

PATIENT
  Age: 66 Year
  Sex: Male
  Weight: 97.52 kg

DRUGS (24)
  1. CHANTIX [Interacting]
     Active Substance: VARENICLINE TARTRATE
     Dosage: 0.5 MG, 2X/DAY
     Route: 048
  2. CHANTIX [Interacting]
     Active Substance: VARENICLINE TARTRATE
     Dosage: 1 MG, 2X/DAY
     Route: 048
     Dates: start: 201907, end: 201907
  3. CHANTIX [Suspect]
     Active Substance: VARENICLINE TARTRATE
     Indication: SMOKING CESSATION THERAPY
     Dosage: 0.5 MG, DAILY
     Route: 048
     Dates: start: 201905
  4. ATORVASTATIN CALCIUM. [Concomitant]
     Active Substance: ATORVASTATIN CALCIUM
     Dosage: 40 MG, 1X/DAY
     Route: 048
     Dates: start: 20180607
  5. BACTRIM [Concomitant]
     Active Substance: SULFAMETHOXAZOLE\TRIMETHOPRIM
     Dosage: 400/80 MG ORAL TABLET, 3 TIMES A WEEK
     Route: 048
     Dates: start: 20180607
  6. CHANTIX [Interacting]
     Active Substance: VARENICLINE TARTRATE
     Dosage: 1 MG, DAILY
     Route: 048
  7. CHANTIX [Interacting]
     Active Substance: VARENICLINE TARTRATE
     Dosage: 1 MG, 2X/DAY
     Route: 048
     Dates: end: 2019
  8. CHANTIX [Interacting]
     Active Substance: VARENICLINE TARTRATE
     Dosage: 1 MG, 1X/DAY
     Route: 048
  9. LYRICA [Interacting]
     Active Substance: PREGABALIN
     Indication: MUSCLE TWITCHING
     Dosage: 300 MG, 2X/DAY
     Route: 048
     Dates: start: 2014
  10. CLOPIDOGREL BISULFATE. [Concomitant]
     Active Substance: CLOPIDOGREL BISULFATE
     Dosage: 75 MG, DAILY
     Route: 048
     Dates: start: 20180724
  11. GLIMEPIRIDE. [Concomitant]
     Active Substance: GLIMEPIRIDE
     Dosage: 2 MG, 1X/DAY
     Route: 048
     Dates: start: 20180607
  12. CHANTIX [Interacting]
     Active Substance: VARENICLINE TARTRATE
     Dosage: 0.5 DF, DAILY (1/2 TAB DAILY FOR 7 DAYS)
     Route: 048
     Dates: start: 201907, end: 201907
  13. DULOXETINE HCL [Concomitant]
     Active Substance: DULOXETINE HYDROCHLORIDE
     Dosage: 1-2 CAPS PO (PER ORAL) QD (EVERY DAY)
     Route: 048
     Dates: start: 20180607
  14. LANTUS [Concomitant]
     Active Substance: INSULIN GLARGINE
     Dosage: AD (RIGHT EAR)
     Dates: start: 20180607
  15. TACROLIMUS. [Concomitant]
     Active Substance: TACROLIMUS
     Dosage: 0.5 MG, 2X/DAY, 1 CAP PO (PER ORAL) Q (EVERY) 12HRS
     Route: 048
     Dates: start: 20180607
  16. CHANTIX [Interacting]
     Active Substance: VARENICLINE TARTRATE
     Dosage: 1 MG, DAILY (1 TAB DAILY FOR 7 DAYS)
     Route: 048
     Dates: start: 201907, end: 201907
  17. LYRICA [Interacting]
     Active Substance: PREGABALIN
     Indication: NEUROPATHY PERIPHERAL
     Dosage: UNK
     Dates: start: 2012
  18. CEPHALEXIN HCL [Concomitant]
     Active Substance: CEPHALEXIN HYDROCHLORIDE
     Dosage: 2 TABS 1 HOUR TO PROCEDURE, THEN 1 TAB TID (THRICE A DAY) X 3 DAYS
     Route: 048
     Dates: start: 20190910
  19. CHANTIX [Interacting]
     Active Substance: VARENICLINE TARTRATE
     Dosage: 1 MG, 2X/DAY
     Route: 048
  20. LYRICA [Interacting]
     Active Substance: PREGABALIN
     Indication: NEUROPATHY PERIPHERAL
     Dosage: 75 MG, UNK
     Dates: start: 201907
  21. MOVANTIK [Concomitant]
     Active Substance: NALOXEGOL OXALATE
     Dosage: 25 MG, DAILY
     Route: 048
     Dates: start: 20190321
  22. NORCO [Concomitant]
     Active Substance: ACETAMINOPHEN\HYDROCODONE BITARTRATE
     Dosage: 0-325MG ORAL TABLET 1 PO (PER ORAL) TID (THRICE A DAY)
     Route: 048
     Dates: start: 20180607
  23. OMEPRAZOLE. [Concomitant]
     Active Substance: OMEPRAZOLE
     Dosage: 40 MG, 1X/DAY, 1 CAP PO (PER ORAL) QD (EVERY DAY)
     Route: 048
     Dates: start: 20180607
  24. FINASTERIDE. [Concomitant]
     Active Substance: FINASTERIDE
     Dosage: 5 MG, 1X/DAY
     Route: 048
     Dates: start: 20180607

REACTIONS (3)
  - Inhibitory drug interaction [Recovered/Resolved]
  - Off label use [Unknown]
  - Nausea [Recovered/Resolved]

NARRATIVE: CASE EVENT DATE: 201905
